FAERS Safety Report 11252406 (Version 1)
Quarter: 2015Q3

REPORT INFORMATION
  Report Type: Spontaneous
  Country: US (occurrence: US)
  Receive Date: 20150708
  Receipt Date: 20150708
  Transmission Date: 20151125
  Serious: Yes (Other)
  Sender: FDA-Public Use
  Company Number: US-AMEDRA PHARMACEUTICALS LLC-2015AMD00127

PATIENT
  Age: 34 Year
  Sex: Female

DRUGS (15)
  1. PROFOLOL [Concomitant]
  2. ERYTHROMYCIN. [Concomitant]
     Active Substance: ERYTHROMYCIN
  3. MIDAZOLAM [Concomitant]
     Active Substance: MIDAZOLAM\MIDAZOLAM HYDROCHLORIDE
     Dosage: 4 MG, UNK
  4. CISATRACURIUM. [Concomitant]
     Active Substance: CISATRACURIUM
  5. KETOROLAC [Concomitant]
     Active Substance: KETOROLAC\KETOROLAC TROMETHAMINE
     Dosage: 30 MG, UNK
  6. FENTANYL. [Concomitant]
     Active Substance: FENTANYL
     Dosage: 350 ?G, UNK
  7. REMIFENTANIL [Concomitant]
     Active Substance: REMIFENTANIL
  8. PHENYLEPHRINE [Concomitant]
     Active Substance: PHENYLEPHRINE\PHENYLEPHRINE HYDROCHLORIDE
     Dosage: 160 ?G, UNK
  9. ONDANSETRON [Concomitant]
     Active Substance: ONDANSETRON
     Dosage: 4 MG, UNK
  10. XYLOMETAZOLINE [Concomitant]
     Active Substance: XYLOMETAZOLINE
  11. METHYLPREDNISOLONE. [Concomitant]
     Active Substance: METHYLPREDNISOLONE
     Dosage: 125 MG, EVERY 4 HOURS
  12. ESMOLOL [Concomitant]
     Active Substance: ESMOLOL HYDROCHLORIDE
  13. EPINEPHRINE. [Suspect]
     Active Substance: EPINEPHRINE
     Indication: OSTEOTOMY
     Dosage: 1:100,000, BY INFILTRATION
  14. LIDOCAINE. [Suspect]
     Active Substance: LIDOCAINE
     Dosage: 2 %, BY INFILTRATION
  15. SCOPOLAMINE [Concomitant]
     Active Substance: SCOPOLAMINE
     Route: 062

REACTIONS (1)
  - Pupils unequal [Recovered/Resolved]
